FAERS Safety Report 16520564 (Version 1)
Quarter: 2019Q3

REPORT INFORMATION
  Report Type: Spontaneous
  Country: NL (occurrence: NL)
  Receive Date: 20190702
  Receipt Date: 20190702
  Transmission Date: 20191004
  Serious: Yes (Death, Disabling)
  Sender: FDA-Public Use
  Company Number: NL-JNJFOC-20190633368

PATIENT
  Age: 81 Year
  Sex: Male

DRUGS (1)
  1. IMBRUVICA [Suspect]
     Active Substance: IBRUTINIB
     Indication: MANTLE CELL LYMPHOMA
     Route: 048
     Dates: start: 20190416, end: 20190426

REACTIONS (1)
  - Epidural haemorrhage [Fatal]

NARRATIVE: CASE EVENT DATE: 20190426
